FAERS Safety Report 10037212 (Version 1)
Quarter: 2014Q1

REPORT INFORMATION
  Report Type: Spontaneous
  Country: CH (occurrence: CH)
  Receive Date: 20140326
  Receipt Date: 20140326
  Transmission Date: 20141002
  Serious: Yes (Other)
  Sender: FDA-Public Use
  Company Number: 2014SP001754

PATIENT
  Age: 39 Year
  Sex: Female

DRUGS (6)
  1. CARBOPLATIN [Suspect]
     Indication: CERVIX CARCINOMA
     Dates: start: 20130523, end: 20130725
  2. DEXAMETHASONE [Suspect]
     Indication: PRODUCT USED FOR UNKNOWN INDICATION
     Dates: start: 20130522, end: 20130725
  3. ONDANSETRON HYDROCHLORIDE [Suspect]
     Indication: PRODUCT USED FOR UNKNOWN INDICATION
     Dates: start: 20130523, end: 20130725
  4. PACLITAXEL [Suspect]
     Indication: CERVIX CARCINOMA
     Dates: start: 20130523, end: 20130725
  5. DOMPERIDONE [Suspect]
     Indication: PRODUCT USED FOR UNKNOWN INDICATION
  6. TAVEGYL [Suspect]
     Indication: PRODUCT USED FOR UNKNOWN INDICATION
     Dates: start: 20130523, end: 20130725

REACTIONS (2)
  - Exposure during pregnancy [Unknown]
  - Premature baby [Unknown]
